FAERS Safety Report 4768932-2 (Version None)
Quarter: 2005Q3

REPORT INFORMATION
  Report Type: 
  Country: None (occurrence: None)
  Receive Date: 20050914
  Receipt Date: 20050821
  Transmission Date: 20060218
  Serious: Yes (Hospitalization)
  Sender: FDA-Public Use
  Company Number: 27336

PATIENT
  Sex: Male

DRUGS (1)
  1. ALDARA [Suspect]
     Indication: CONDYLOMA ACUMINATUM
     Dosage: (3 IN 1 WEEK (S)), TOPICAL
     Route: 061
     Dates: start: 20050502, end: 20050505

REACTIONS (1)
  - APPLICATION SITE IRRITATION [None]
